FAERS Safety Report 18033233 (Version 1)
Quarter: 2020Q3

REPORT INFORMATION
  Report Type: Not Available
  Country: US (occurrence: US)
  Receive Date: 20200716
  Receipt Date: 20200716
  Transmission Date: 20201103
  Serious: No
  Sender: FDA-Public Use
  Company Number: US-NEUROCRINE BIOSCIENCES INC.-2020NBI02392

PATIENT
  Age: 54 Year
  Sex: Female

DRUGS (2)
  1. INGREZZA [Suspect]
     Active Substance: VALBENAZINE
     Indication: TARDIVE DYSKINESIA
     Route: 048
     Dates: start: 20171017
  2. COGENTIN [Suspect]
     Active Substance: BENZTROPINE MESYLATE
     Indication: TARDIVE DYSKINESIA

REACTIONS (2)
  - Dry mouth [Unknown]
  - Migraine [Unknown]
